FAERS Safety Report 7007062-6 (Version None)
Quarter: 2010Q3

REPORT INFORMATION
  Report Type: 
  Country: None (occurrence: None)
  Receive Date: 20100922
  Receipt Date: 20100917
  Transmission Date: 20110219
  Serious: Yes (Death, Hospitalization)
  Sender: FDA-Public Use
  Company Number: ZW-ABBOTT-10P-190-0671268-00

PATIENT
  Sex: Female

DRUGS (7)
  1. ALUVIA TABLETS [Suspect]
     Indication: HIV INFECTION
     Route: 048
     Dates: start: 20100907
  2. ABACAVIR [Concomitant]
     Indication: HIV INFECTION
     Dates: start: 20100907
  3. DIDANOSINE [Concomitant]
     Indication: HIV INFECTION
     Dates: start: 20100907
  4. RIFABUTIN [Concomitant]
     Indication: PRODUCT USED FOR UNKNOWN INDICATION
     Dates: start: 20100826
  5. ISONIAZID [Concomitant]
     Indication: PRODUCT USED FOR UNKNOWN INDICATION
     Dates: start: 20100222
  6. ETHAMBUTOL HYDROCHLORIDE [Concomitant]
     Indication: PRODUCT USED FOR UNKNOWN INDICATION
     Dates: start: 20100222
  7. PYRAZINAMIDE [Concomitant]
     Indication: PRODUCT USED FOR UNKNOWN INDICATION
     Dates: start: 20100222

REACTIONS (5)
  - ASTHENIA [None]
  - DYSPNOEA [None]
  - HEADACHE [None]
  - PYREXIA [None]
  - SEPSIS [None]
